FAERS Safety Report 13273667 (Version 4)
Quarter: 2017Q2

REPORT INFORMATION
  Report Type: Report from Study
  Country: US (occurrence: US)
  Receive Date: 20170227
  Receipt Date: 20170515
  Transmission Date: 20170830
  Serious: Yes (Other)
  Sender: FDA-Public Use
  Company Number: US-LABORATOIRE HRA PHARMA-1063616

PATIENT
  Age: 27 Year
  Sex: Female
  Weight: 43.35 kg

DRUGS (3)
  1. ELLA [Suspect]
     Active Substance: ULIPRISTAL ACETATE
     Route: 048
     Dates: start: 20161013, end: 20161013
  2. ZOLOFT [Concomitant]
     Active Substance: SERTRALINE HYDROCHLORIDE
  3. DEPO-PROVERA [Concomitant]
     Active Substance: MEDROXYPROGESTERONE ACETATE
     Dates: start: 20161013, end: 20161013

REACTIONS (3)
  - Abortion missed [None]
  - Exposure during pregnancy [None]
  - Abortion induced [None]

NARRATIVE: CASE EVENT DATE: 20170209
